FAERS Safety Report 13508213 (Version 9)
Quarter: 2018Q1

REPORT INFORMATION
  Report Type: Report from Study
  Country: PL (occurrence: PL)
  Receive Date: 20170503
  Receipt Date: 20180216
  Transmission Date: 20180508
  Serious: Yes (Death, Hospitalization, Disabling)
  Sender: FDA-Public Use
  Company Number: PL-ROCHE-1789655

PATIENT
  Age: 53 Year
  Sex: Female
  Weight: 50 kg

DRUGS (15)
  1. TOCILIZUMAB. [Suspect]
     Active Substance: TOCILIZUMAB
     Indication: SYSTEMIC SCLERODERMA
     Dosage: DATE OF MOST RECENT DOSE 24/APR/2017
     Route: 058
     Dates: start: 20170403
  2. EFFERALGAN CODEINE [Concomitant]
     Active Substance: ACETAMINOPHEN\CODEINE PHOSPHATE
     Indication: SYSTEMIC SCLERODERMA
     Dosage: 1 TABLET
     Route: 048
     Dates: start: 20160311, end: 20170426
  3. SERTAGEN [Concomitant]
     Active Substance: SERTRALINE HYDROCHLORIDE
     Indication: ADJUSTMENT DISORDER WITH DEPRESSED MOOD
     Route: 048
     Dates: start: 20160312, end: 20161006
  4. CALPEROS D3 [Concomitant]
     Active Substance: CALCIUM CARBONATE\CHOLECALCIFEROL
     Indication: OSTEOPOROSIS
     Route: 048
     Dates: start: 20160311, end: 20170429
  5. NOLICIN [Concomitant]
     Route: 048
     Dates: start: 20160719, end: 20160722
  6. BLINDED TOCILIZUMAB [Suspect]
     Active Substance: TOCILIZUMAB
     Indication: SYSTEMIC SCLERODERMA
     Dosage: DATE OF MOST RECENT DOSE PRIOR TO EVENT: 04/JUL/2016
     Route: 058
  7. OSAGRAND [Concomitant]
     Indication: OSTEOPOROSIS
     Route: 048
     Dates: start: 20160311, end: 20170426
  8. AMOXICILLIN TRIHYDRATE [Concomitant]
     Active Substance: AMOXICILLIN
     Indication: INFECTION PROPHYLAXIS
     Route: 048
     Dates: start: 20160723, end: 20160729
  9. MIRTAGEN [Concomitant]
     Active Substance: MIRTAZAPINE
     Indication: ADJUSTMENT DISORDER WITH DEPRESSED MOOD
     Route: 048
     Dates: start: 20161104, end: 20170426
  10. TRITTICO CR [Concomitant]
     Active Substance: TRAZODONE HYDROCHLORIDE
     Indication: ADJUSTMENT DISORDER WITH DEPRESSED MOOD
     Route: 048
     Dates: start: 20160317, end: 20160907
  11. MYCOPHENOLATE MOFETIL. [Concomitant]
     Active Substance: MYCOPHENOLATE MOFETIL
     Indication: SYSTEMIC SCLERODERMA
     Route: 048
     Dates: start: 20160721, end: 20170227
  12. TRITTICO CR [Concomitant]
     Active Substance: TRAZODONE HYDROCHLORIDE
     Route: 048
     Dates: start: 20170427, end: 20170429
  13. PARACETAMOL [Concomitant]
     Active Substance: ACETAMINOPHEN
     Indication: ARTHRITIS
     Route: 048
     Dates: start: 201612, end: 20170426
  14. MEPRELON [Concomitant]
     Indication: SYSTEMIC SCLERODERMA
     Route: 048
     Dates: start: 20150922, end: 20170429
  15. NOLPAZA (POLAND) [Concomitant]
     Indication: GASTRITIS PROPHYLAXIS
     Route: 048
     Dates: start: 20150922, end: 20170429

REACTIONS (2)
  - Pulmonary hypertension [Fatal]
  - Cardiac failure [Recovered/Resolved with Sequelae]

NARRATIVE: CASE EVENT DATE: 20170427
